FAERS Safety Report 4844913-5 (Version None)
Quarter: 2005Q4

REPORT INFORMATION
  Report Type: 
  Country: None (occurrence: None)
  Receive Date: 20051128
  Receipt Date: 20051121
  Transmission Date: 20060501
  Serious: Yes (Other)
  Sender: FDA-Public Use
  Company Number: 2005-11-1110

PATIENT
  Age: 31 Year
  Sex: Female

DRUGS (1)
  1. AERIUS                 (DESLORATADINE) [Suspect]
     Indication: URTICARIA GENERALISED
     Dosage: 1 TABLET QD ORAL
     Route: 048

REACTIONS (2)
  - ANGIONEUROTIC OEDEMA [None]
  - ASTHMA [None]
